FAERS Safety Report 17401356 (Version 1)
Quarter: 2020Q1

REPORT INFORMATION
  Report Type: Spontaneous
  Country: NL (occurrence: NL)
  Receive Date: 20200211
  Receipt Date: 20200211
  Transmission Date: 20200409
  Serious: Yes (Other)
  Sender: FDA-Public Use
  Company Number: NVSC2020NL032064

PATIENT
  Age: 46 Year
  Sex: Male
  Weight: 82 kg

DRUGS (4)
  1. HUMIRA [Concomitant]
     Active Substance: ADALIMUMAB
     Indication: PRODUCT USED FOR UNKNOWN INDICATION
     Dosage: 40 MG, BIW (40 INJ. 50MG/ML-PEN 0,8ML)
     Route: 065
  2. COTRIMOXAZOLE [Concomitant]
     Active Substance: SULFAMETHOXAZOLE\TRIMETHOPRIM
     Indication: PRODUCT USED FOR UNKNOWN INDICATION
     Dosage: 1 DF, QD (1 DOSAGE FORMS DAILY; 1 DOSAGE FORM CONTAINS 400 MG SULFAMETHOXAZOLE AND 80 MG TRIMETHOPRI
     Route: 065
  3. PREDNISOLONE. [Suspect]
     Active Substance: PREDNISOLONE
     Indication: PRODUCT USED FOR UNKNOWN INDICATION
     Dosage: 40 MG, QD (40 MILLIGRAM DAILY)
     Route: 065
  4. THIOSIX [Suspect]
     Active Substance: THIOGUANINE ANHYDROUS
     Indication: INFLAMMATORY BOWEL DISEASE
     Dosage: 20 MG, QD (20 MILLIGRAM DAILY)
     Route: 065

REACTIONS (6)
  - Abdominal pain [Recovering/Resolving]
  - Drug dependence [Recovering/Resolving]
  - Frequent bowel movements [Recovering/Resolving]
  - Mucous stools [Recovering/Resolving]
  - Abdominal discomfort [Recovering/Resolving]
  - Haematochezia [Recovering/Resolving]

NARRATIVE: CASE EVENT DATE: 20170322
